FAERS Safety Report 19172937 (Version 2)
Quarter: 2021Q2

REPORT INFORMATION
  Report Type: Spontaneous
  Country: CO (occurrence: CO)
  Receive Date: 20210423
  Receipt Date: 20210429
  Transmission Date: 20210717
  Serious: Yes (Other)
  Sender: FDA-Public Use
  Company Number: CO-PFIZER INC-2021246955

PATIENT
  Age: 59 Year
  Sex: Female

DRUGS (1)
  1. REAMPLA [Suspect]
     Active Substance: PALBOCICLIB
     Indication: BREAST CANCER METASTATIC
     Dosage: 125 MG
     Route: 048
     Dates: start: 2019

REACTIONS (6)
  - Pharyngeal disorder [Not Recovered/Not Resolved]
  - Wound [Not Recovered/Not Resolved]
  - Speech disorder [Not Recovered/Not Resolved]
  - Illness [Unknown]
  - Aphonia [Unknown]
  - Pain [Unknown]

NARRATIVE: CASE EVENT DATE: 202010
